FAERS Safety Report 18840690 (Version 3)
Quarter: 2021Q1

REPORT INFORMATION
  Report Type: Spontaneous
  Country: US (occurrence: US)
  Receive Date: 20210204
  Receipt Date: 20210219
  Transmission Date: 20210419
  Serious: Yes (Death, Hospitalization, Other)
  Sender: FDA-Public Use
  Company Number: US-MTPC-MTDA2021-0002968

PATIENT
  Age: 70 Year
  Sex: Female

DRUGS (1)
  1. RADICAVA [Suspect]
     Active Substance: EDARAVONE
     Indication: AMYOTROPHIC LATERAL SCLEROSIS
     Dosage: STANDARD DOSING
     Route: 065
     Dates: start: 202012, end: 202101

REACTIONS (3)
  - Brain death [Fatal]
  - Hypoxia [Fatal]
  - Central venous catheterisation [Fatal]

NARRATIVE: CASE EVENT DATE: 20210125
